FAERS Safety Report 10485035 (Version 2)
Quarter: 2014Q3

REPORT INFORMATION
  Report Type: Spontaneous
  Country: BR (occurrence: BR)
  Receive Date: 20140930
  Receipt Date: 20140930
  Transmission Date: 20150326
  Serious: Yes (Other)
  Sender: FDA-Public Use
  Company Number: BR-ABBVIE-14P-020-1287066-00

PATIENT
  Sex: Female
  Weight: 61 kg

DRUGS (5)
  1. CELESTAMINE [Concomitant]
     Active Substance: BETAMETHASONE\DEXCHLORPHENIRAMINE MALEATE
     Indication: COUGH
     Dosage: FORM STRENGTH: 2MG + 0.25MG; AS NECESSARY, TAKES 1 TABLET AT NIGHT
  2. AVAMYS [Concomitant]
     Active Substance: FLUTICASONE FUROATE
     Indication: NASAL DECONGESTION THERAPY
     Dosage: FREQUENCY (WHEN ATTACKING RHINITIS)
     Route: 045
     Dates: start: 2013
  3. DEPAKOTE ER [Suspect]
     Active Substance: DIVALPROEX SODIUM
     Indication: MIGRAINE
     Dosage: 500MG; AT NIGHT
     Route: 048
     Dates: start: 2009
  4. AMYTRIL [Concomitant]
     Active Substance: AMITRIPTYLINE HYDROCHLORIDE
     Indication: DEPRESSION
     Dosage: 2 TABLETS PER DAY, ONE IN THE AM AND OTHER AT PM
     Route: 048
     Dates: start: 2009
  5. DEPAKOTE [Suspect]
     Active Substance: DIVALPROEX SODIUM
     Indication: MIGRAINE
     Dosage: 500MG; AT NIGHT
     Route: 048
     Dates: start: 200911

REACTIONS (6)
  - Headache [Recovering/Resolving]
  - Varicose vein [Unknown]
  - Cyst [Unknown]
  - Drug dependence [Unknown]
  - Drug ineffective [Unknown]
  - Peripheral swelling [Unknown]

NARRATIVE: CASE EVENT DATE: 2009
